FAERS Safety Report 18605463 (Version 2)
Quarter: 2020Q4

REPORT INFORMATION
  Report Type: Spontaneous
  Country: US (occurrence: US)
  Receive Date: 20201211
  Receipt Date: 20201225
  Transmission Date: 20210114
  Serious: No
  Sender: FDA-Public Use
  Company Number: US-LUPIN PHARMACEUTICALS INC.-2020-10171

PATIENT
  Age: 51 Year

DRUGS (14)
  1. TRIAMCINOLONE [Suspect]
     Active Substance: TRIAMCINOLONE
     Indication: DERMATITIS ATOPIC
     Dosage: UNK
     Route: 065
  2. PREDNISONE. [Suspect]
     Active Substance: PREDNISONE
     Indication: DERMATITIS ATOPIC
     Dosage: UNK
     Route: 065
  3. OMALIZUMAB. [Suspect]
     Active Substance: OMALIZUMAB
     Indication: DERMATITIS ATOPIC
     Dosage: 300 MILLIGRAM, MONTHLY
     Route: 065
  4. FLUOCINONIDE. [Suspect]
     Active Substance: FLUOCINONIDE
     Indication: DERMATITIS ATOPIC
     Dosage: UNK
     Route: 065
  5. CLINDAMYCIN. [Suspect]
     Active Substance: CLINDAMYCIN
     Indication: DERMATITIS ATOPIC
     Dosage: 300 MILLIGRAM
     Route: 065
  6. HYDROXYZINE [Suspect]
     Active Substance: HYDROXYZINE HYDROCHLORIDE
     Indication: DERMATITIS ATOPIC
     Dosage: UNK
     Route: 065
  7. AZATHIOPRINE. [Suspect]
     Active Substance: AZATHIOPRINE
     Indication: DERMATITIS ATOPIC
     Dosage: UNK
     Route: 065
  8. NALTREXONE [Suspect]
     Active Substance: NALTREXONE
     Indication: DERMATITIS ATOPIC
     Dosage: UNK
     Route: 065
  9. BUTORPHANOL [Concomitant]
     Active Substance: BUTORPHANOL
     Indication: DERMATITIS ATOPIC
     Dosage: 10 MILLIGRAM PER MILLILITRE, PRN
     Route: 045
  10. TRIAMCINOLONE [Suspect]
     Active Substance: TRIAMCINOLONE
     Dosage: 80 MILLIGRAM-INJECTION
     Route: 030
  11. TRIAMCINOLONE [Suspect]
     Active Substance: TRIAMCINOLONE
     Dosage: UNK, APREPITANT
     Route: 065
  12. CYCLOSPORINE. [Suspect]
     Active Substance: CYCLOSPORINE
     Indication: DERMATITIS ATOPIC
     Dosage: UNK
     Route: 065
  13. METHOTREXATE. [Suspect]
     Active Substance: METHOTREXATE
     Indication: DERMATITIS ATOPIC
     Dosage: UNK
     Route: 065
  14. MYCOPHENOLIC ACID. [Suspect]
     Active Substance: MYCOPHENOLIC ACID
     Indication: DERMATITIS ATOPIC
     Dosage: 1 GRAM, QD
     Route: 065

REACTIONS (1)
  - Treatment failure [Unknown]
